FAERS Safety Report 9215906 (Version 1)
Quarter: 2013Q2

REPORT INFORMATION
  Report Type: Spontaneous
  Country: RU (occurrence: None)
  Receive Date: 20130403
  Receipt Date: 20130403
  Transmission Date: 20140414
  Serious: Yes (Life-Threatening)
  Sender: FDA-Public Use
  Company Number: RU-1197323

PATIENT
  Age: 73 Year
  Sex: Male

DRUGS (1)
  1. TRAVATAN 0.004 % OPHTHALMIC SOLUTION (TRAVATAN 0.004%) [Suspect]
     Indication: OPEN ANGLE GLAUCOMA
     Route: 047
     Dates: start: 201302

REACTIONS (2)
  - Syncope [None]
  - Tinnitus [None]
